FAERS Safety Report 4305163-4 (Version None)
Quarter: 2004Q1

REPORT INFORMATION
  Report Type: 
  Country: None (occurrence: None)
  Receive Date: 20040224
  Receipt Date: 20040224
  Transmission Date: 20041129
  Serious: Yes (Life-Threatening)
  Sender: FDA-Public Use
  Company Number: None

PATIENT
  Age: 33 Year
  Sex: Male
  Weight: 97.5 kg

DRUGS (1)
  1. CLOZAPINE [Suspect]

REACTIONS (3)
  - CONSTIPATION [None]
  - DYSPHAGIA [None]
  - WEIGHT INCREASED [None]
